FAERS Safety Report 5776563-0 (Version None)
Quarter: 2008Q2

REPORT INFORMATION
  Report Type: 
  Country: None (occurrence: None)
  Receive Date: 20080618
  Receipt Date: 20080606
  Transmission Date: 20081010
  Serious: Yes (Hospitalization)
  Sender: FDA-Public Use
  Company Number: ZA-ELI_LILLY_AND_COMPANY-ZA200805004276

PATIENT
  Sex: Male

DRUGS (4)
  1. ZYPREXA [Suspect]
  2. RISPERDAL [Concomitant]
     Indication: SCHIZOPHRENIA
     Dosage: 3 MG, EACH EVENING
     Route: 048
     Dates: start: 20070401, end: 20080401
  3. RISPERDAL CONSTA [Concomitant]
     Dosage: 25 MG, OTHER
     Route: 030
     Dates: start: 20070401
  4. ESCITALOPRAM [Concomitant]
     Indication: DEPRESSION
     Dosage: 10 MG, UNK
     Dates: start: 20070401

REACTIONS (1)
  - DISEASE RECURRENCE [None]
